FAERS Safety Report 4282494-8 (Version None)
Quarter: 2004Q1

REPORT INFORMATION
  Report Type: 
  Country: None (occurrence: None)
  Receive Date: 20040129
  Receipt Date: 20040116
  Transmission Date: 20041129
  Serious: Yes (Other)
  Sender: FDA-Public Use
  Company Number: 2002059273

PATIENT
  Age: 72 Year
  Sex: Female
  Weight: 70.3075 kg

DRUGS (8)
  1. LIPITOR [Suspect]
     Indication: BLOOD CHOLESTEROL INCREASED
     Dosage: 20 MG (DAILY), ORAL
     Route: 048
     Dates: start: 20020101, end: 20020801
  2. GEMFIBROZIL [Suspect]
     Indication: BLOOD CHOLESTEROL INCREASED
     Dosage: ORAL
     Route: 048
     Dates: start: 20030101, end: 20031201
  3. LOVASTATIN [Suspect]
     Indication: BLOOD CHOLESTEROL INCREASED
     Dates: end: 20030101
  4. NICOTINIC ACID [Suspect]
     Indication: BLOOD CHOLESTEROL INCREASED
     Dates: end: 20030101
  5. ATENOLOL [Concomitant]
  6. AMLODIPINE [Concomitant]
  7. VALSARTAN (VALSARTAN) [Concomitant]
  8. HYDROCHLOROTHIAZIDE [Concomitant]

REACTIONS (8)
  - ASTHENIA [None]
  - CAROTID ARTERY DISEASE [None]
  - CORONARY ARTERY OCCLUSION [None]
  - DIFFICULTY IN WALKING [None]
  - HEADACHE [None]
  - INFLUENZA [None]
  - MYALGIA [None]
  - PAIN [None]
